FAERS Safety Report 5236238-3 (Version None)
Quarter: 2007Q1

REPORT INFORMATION
  Report Type: 
  Country: None (occurrence: None)
  Receive Date: 20070212
  Receipt Date: 20070201
  Transmission Date: 20070707
  Serious: Yes (Hospitalization)
  Sender: FDA-Public Use
  Company Number: IL-AMGEN-UK209719

PATIENT
  Age: 53 Year
  Sex: Male
  Weight: 81 kg

DRUGS (12)
  1. NEUPOGEN [Suspect]
     Indication: CHEMOTHERAPY
     Route: 065
     Dates: start: 20070103, end: 20070104
  2. NEULASTIM [Suspect]
     Indication: CHEMOTHERAPY
     Route: 065
     Dates: start: 20061129
  3. CYCLOPHOSPHAMIDE [Concomitant]
     Route: 065
     Dates: start: 20061129
  4. DOXORUBICIN HCL [Concomitant]
     Route: 065
     Dates: start: 20061129
  5. VINCRISTINE [Concomitant]
     Route: 065
     Dates: start: 20061129
  6. PREDNISONE [Concomitant]
     Route: 065
     Dates: start: 20061129
  7. RITUXIMAB [Concomitant]
     Route: 065
     Dates: start: 20061213
  8. METHOTREXATE [Concomitant]
     Route: 065
     Dates: start: 20061201
  9. LAMIVUDINE [Concomitant]
     Route: 065
  10. RECORMON [Concomitant]
     Route: 065
  11. ENALAPRIL MALEATE [Concomitant]
     Route: 065
  12. SIMVASTATIN [Concomitant]
     Route: 065

REACTIONS (4)
  - FEBRILE NEUTROPENIA [None]
  - IDIOPATHIC PULMONARY FIBROSIS [None]
  - NEUTROPENIA [None]
  - PNEUMONIA [None]
